FAERS Safety Report 5070112-0 (Version None)
Quarter: 2006Q3

REPORT INFORMATION
  Report Type: 
  Country: None (occurrence: None)
  Receive Date: 20060802
  Receipt Date: 20060802
  Transmission Date: 20061208
  Serious: Yes (Hospitalization)
  Sender: FDA-Public Use
  Company Number: None

PATIENT
  Age: 82 Year
  Sex: Male
  Weight: 79 kg

DRUGS (2)
  1. METOPROLOL SUCCINATE EXTENDED RELEASE [Suspect]
     Indication: CARDIAC FAILURE CONGESTIVE
     Dosage: PO Q DAY INCREASED FROM 25 MG ON 3/7/06
     Route: 048
     Dates: start: 20060307
  2. FUROSEMIDE [Suspect]
     Dosage: PO Q DAY INCREASED FROM 20 MG ON 3/7/06
     Route: 048
     Dates: start: 20060307

REACTIONS (6)
  - BRADYCARDIA [None]
  - CARDIAC FAILURE CONGESTIVE [None]
  - CEREBROVASCULAR ACCIDENT [None]
  - CONDITION AGGRAVATED [None]
  - MYOCARDIAL INFARCTION [None]
  - SYNCOPE [None]
